FAERS Safety Report 9648522 (Version 1)
Quarter: 2013Q4

REPORT INFORMATION
  Report Type: Spontaneous
  Country: US (occurrence: US)
  Receive Date: 20131028
  Receipt Date: 20131028
  Transmission Date: 20140711
  Serious: Yes (Hospitalization, Other)
  Sender: FDA-Public Use
  Company Number: US-SA-2013SA108529

PATIENT
  Age: 48 Year
  Sex: Male

DRUGS (1)
  1. ARAVA [Suspect]
     Route: 065

REACTIONS (2)
  - Intestinal obstruction [Not Recovered/Not Resolved]
  - Renal disorder [Not Recovered/Not Resolved]
